FAERS Safety Report 19108627 (Version 4)
Quarter: 2021Q3

REPORT INFORMATION
  Report Type: Report from Study
  Country: JP (occurrence: JP)
  Receive Date: 20210408
  Receipt Date: 20210707
  Transmission Date: 20211014
  Serious: Yes (Hospitalization)
  Sender: FDA-Public Use
  Company Number: JP-ASTELLAS-2021JP000005

PATIENT
  Age: 53 Year
  Sex: Male

DRUGS (39)
  1. URSODEOXYCHOLIC ACID [Concomitant]
     Active Substance: URSODIOL
     Indication: HEPATIC STEATOSIS
     Route: 048
  2. RABEPRAZOLE NA [Concomitant]
     Active Substance: RABEPRAZOLE SODIUM
     Route: 048
     Dates: start: 20210107
  3. ACUATIM [Concomitant]
     Active Substance: NADIFLOXACIN
     Indication: FURUNCLE
     Dosage: ADEQUATE DOSE, ONCE DAILY
     Route: 050
     Dates: start: 20201222
  4. GEBEN [Concomitant]
     Active Substance: SILVER SULFADIAZINE
     Indication: FURUNCLE
     Dosage: ADEQUATE DOSE, ONCE DAILY
     Route: 050
     Dates: start: 20201228
  5. TELMISARTAN OD [Concomitant]
     Active Substance: TELMISARTAN
     Indication: HYPERTENSION
     Route: 048
     Dates: start: 20210116
  6. AMLODIPINE [Concomitant]
     Active Substance: AMLODIPINE BESYLATE
     Indication: HYPERTENSION
     Route: 048
     Dates: start: 20210116
  7. MINOPHAGEN C [Concomitant]
     Indication: LIVER DISORDER
     Dosage: UNK UNK, ONCE DAILY
     Route: 042
     Dates: start: 20210208
  8. ASP2215 [Suspect]
     Active Substance: GILTERITINIB
     Indication: ACUTE MYELOID LEUKAEMIA
     Route: 065
     Dates: start: 20201229
  9. CYTARABINE. [Suspect]
     Active Substance: CYTARABINE
     Dosage: CONSOLIDATION THERAPY: DAY1, 3, 5, 1.5 G/M2, TWICE DAILY
     Route: 042
     Dates: start: 20210202, end: 20210206
  10. FEBURIC [Concomitant]
     Active Substance: FEBUXOSTAT
     Indication: HYPERURICAEMIA
     Route: 048
     Dates: start: 20201222
  11. RABEPRAZOLE NA [Concomitant]
     Active Substance: RABEPRAZOLE SODIUM
     Indication: GASTRITIS PROPHYLAXIS
     Route: 048
  12. VEMLIDY [Concomitant]
     Active Substance: TENOFOVIR ALAFENAMIDE FUMARATE
     Indication: HEPATITIS B
     Route: 048
     Dates: start: 20201222
  13. MEROPENEM. [Concomitant]
     Active Substance: MEROPENEM
     Dosage: UNK UNK, UNKNOWN FREQ.
     Route: 041
     Dates: start: 20210219
  14. MICAFUNGIN SODIUM [Concomitant]
     Active Substance: MICAFUNGIN SODIUM
     Indication: INFECTION PROPHYLAXIS
     Route: 042
     Dates: start: 20210209
  15. MICAFUNGIN SODIUM [Concomitant]
     Active Substance: MICAFUNGIN SODIUM
     Route: 042
     Dates: start: 20210309
  16. VANCOMYCIN HYDROCHLORIDE. [Concomitant]
     Active Substance: VANCOMYCIN HYDROCHLORIDE
     Indication: PYREXIA
     Dosage: UNK UNK, UNKNOWN FREQ.
     Route: 041
     Dates: start: 20210220, end: 20210403
  17. CYTARABINE. [Suspect]
     Active Substance: CYTARABINE
     Dosage: CONSOLIDATION THERAPY: DAY1, 3, 5, 1.5 G/M2, TWICE DAILY
     Route: 042
     Dates: start: 20210302, end: 20210306
  18. VEMLIDY [Concomitant]
     Active Substance: TENOFOVIR ALAFENAMIDE FUMARATE
     Route: 048
     Dates: start: 20201226
  19. ASP2215 [Suspect]
     Active Substance: GILTERITINIB
     Route: 065
  20. TERAMURO [Concomitant]
     Indication: HYPERTENSION
     Route: 048
  21. NATRIX [Concomitant]
     Active Substance: INDAPAMIDE
     Indication: HYPERTENSION
     Route: 048
  22. LULICON [Concomitant]
     Active Substance: LULICONAZOLE
     Indication: TINEA PEDIS
     Dosage: ADEQUATE DOSE, ONCE DAILY
     Route: 050
     Dates: start: 20201222
  23. HIRUDOID [Concomitant]
     Active Substance: GLYCOSAMINOGLYCANS
     Indication: RASH
     Dosage: ADEQUATE DOSE, SEVERAL TIMES DAILY
     Route: 050
     Dates: start: 20201228
  24. AZUNOL GARGLE LIQUID [Concomitant]
     Active Substance: SODIUM GUALENATE MONOHYDRATE
     Indication: PROPHYLAXIS
     Dosage: ADEQUATE DOSE, SEVERAL TIMES DAILY
     Route: 061
     Dates: start: 20201229
  25. MAINTATE [Concomitant]
     Active Substance: BISOPROLOL FUMARATE
     Indication: HYPERTENSION
     Route: 048
     Dates: start: 20210116
  26. DAIPHEN [Concomitant]
     Active Substance: SULFAMETHOXAZOLE\TRIMETHOPRIM
     Indication: INFECTION PROPHYLAXIS
     Dosage: 0.5 DF, ONCE DAILY
     Route: 048
     Dates: start: 20210226
  27. PROPETO [Concomitant]
     Active Substance: PETROLATUM
     Indication: FURUNCLE
     Dosage: ADEQUATE DOSE, SEVERAL TIMES DAILY
     Route: 050
  28. FAMOTIDINE. [Concomitant]
     Active Substance: FAMOTIDINE
     Indication: GASTRITIS PROPHYLAXIS
     Route: 048
  29. AZUNOL #1 [Concomitant]
     Indication: PROCTALGIA
     Dosage: ADEQUATE DOSE, SEVERAL TIMES DAILY
     Route: 062
     Dates: start: 20201228
  30. VOALLA [Concomitant]
     Indication: RASH
     Dosage: ADEQUATE DOSE, SEVERAL TIMES DAILY
     Route: 050
     Dates: start: 20201228
  31. MEROPENEM. [Concomitant]
     Active Substance: MEROPENEM
     Indication: PYREXIA
     Dosage: UNK UNK, UNKNOWN FREQ.
     Route: 041
     Dates: start: 20210102
  32. PANTETHINE [Concomitant]
     Active Substance: PANTETHINE
     Indication: CONSTIPATION
     Route: 048
     Dates: start: 20210204
  33. MINOPHAGEN C [Concomitant]
     Dosage: UNK UNK, ONCE DAILY
     Route: 042
     Dates: start: 20210312
  34. MAXIPIME [Concomitant]
     Active Substance: CEFEPIME HYDROCHLORIDE
     Indication: FEBRILE NEUTROPENIA
     Route: 042
     Dates: start: 20210216
  35. CYTARABINE. [Suspect]
     Active Substance: CYTARABINE
     Indication: ACUTE MYELOID LEUKAEMIA
     Dosage: REMISSION INDUCTION THERAPY: 100 MG/M2, ONCE DAILY, FROM DAY 1  TO DAY 7
     Route: 042
     Dates: start: 20201222, end: 20201229
  36. IDARUBICIN [Suspect]
     Active Substance: IDARUBICIN
     Indication: ACUTE MYELOID LEUKAEMIA
     Dosage: REMISSION INDUCTION THERAPY: 12 MG/M2, ONCE DAILY, FROM DAY 1  TO DAY 3
     Route: 042
     Dates: start: 20201222, end: 20201224
  37. MIYA?BM [Concomitant]
     Active Substance: CLOSTRIDIUM BUTYRICUM SPORES STRAIN M-55
     Indication: PROPHYLAXIS AGAINST DIARRHOEA
     Route: 048
  38. MEROPENEM. [Concomitant]
     Active Substance: MEROPENEM
     Dosage: UNK UNK, UNKNOWN FREQ.
     Route: 041
     Dates: start: 20210325, end: 20210403
  39. MAGMITT [Concomitant]
     Active Substance: MAGNESIUM OXIDE
     Indication: CONSTIPATION
     Route: 048
     Dates: start: 20210204

REACTIONS (3)
  - Febrile neutropenia [Recovered/Resolved]
  - Febrile neutropenia [Recovered/Resolved]
  - Tooth infection [Recovered/Resolved]

NARRATIVE: CASE EVENT DATE: 20210103
